FAERS Safety Report 12743747 (Version 1)
Quarter: 2016Q3

REPORT INFORMATION
  Report Type: Spontaneous
  Country: CA (occurrence: CA)
  Receive Date: 20160914
  Receipt Date: 20160914
  Transmission Date: 20161109
  Serious: Yes (Life-Threatening)
  Sender: FDA-Public Use
  Company Number: CA-PFIZER INC-2016413027

PATIENT
  Age: 66 Year
  Sex: Female
  Weight: 68 kg

DRUGS (7)
  1. CELEBREX [Concomitant]
     Active Substance: CELECOXIB
     Indication: RHEUMATOID ARTHRITIS
     Dosage: 200 MG, DAILY
     Dates: start: 20160331
  2. VITAMIN D /00107901/ [Concomitant]
     Active Substance: ERGOCALCIFEROL
     Indication: SUPPLEMENTATION THERAPY
     Dosage: 10000 IU, DAILY
     Route: 048
     Dates: start: 2013
  3. BETAHISTINE [Concomitant]
     Active Substance: BETAHISTINE
     Indication: MENIERE^S DISEASE
     Dosage: UNK
     Dates: start: 2006
  4. PLAQUENIL [Concomitant]
     Active Substance: HYDROXYCHLOROQUINE SULFATE
     Indication: RHEUMATOID ARTHRITIS
     Dosage: 400 MG, DAILY
     Dates: start: 20160331
  5. SYNTHROID [Concomitant]
     Active Substance: LEVOTHYROXINE SODIUM
     Indication: HYPOTHYROIDISM
     Dosage: 0.1 MG, DAILY
     Route: 048
     Dates: start: 2011
  6. TRIAMTERENE. [Concomitant]
     Active Substance: TRIAMTERENE
     Indication: MENIERE^S DISEASE
     Dosage: UNK
     Dates: start: 2006
  7. METHOTREXATE SODIUM. [Suspect]
     Active Substance: METHOTREXATE SODIUM
     Indication: RHEUMATOID ARTHRITIS
     Dosage: 20 MG, WEEKLY
     Route: 058
     Dates: start: 20160613, end: 20160822

REACTIONS (2)
  - Angioedema [Recovered/Resolved]
  - Swelling face [Recovered/Resolved]

NARRATIVE: CASE EVENT DATE: 20160822
